FAERS Safety Report 8340467-X (Version None)
Quarter: 2012Q2

REPORT INFORMATION
  Report Type: 
  Country: None (occurrence: None)
  Receive Date: 20120507
  Receipt Date: 20120426
  Transmission Date: 20120825
  Serious: Yes (Hospitalization)
  Sender: FDA-Public Use
  Company Number: FR-ASTRAZENECA-2012SE27562

PATIENT
  Age: 68 Year
  Sex: Female

DRUGS (10)
  1. ATHYMIL [Suspect]
     Route: 048
     Dates: start: 20100101, end: 20120220
  2. ZOPICLONE [Concomitant]
     Route: 048
  3. TRAMADOL BASE [Concomitant]
     Route: 048
  4. DOGMATIL [Suspect]
     Route: 048
     Dates: end: 20120220
  5. ACETAMINOPHEN W/ PROPOXYPHENE HCL [Suspect]
  6. TRANXENE [Concomitant]
     Route: 048
  7. FELDENE [Concomitant]
  8. NEXIUM [Suspect]
     Route: 048
     Dates: end: 20120220
  9. PRAZEPAM [Suspect]
     Route: 048
     Dates: end: 20120220
  10. ACETAMINOPHEN [Concomitant]
     Route: 048

REACTIONS (2)
  - PAIN IN EXTREMITY [None]
  - AGRANULOCYTOSIS [None]
